FAERS Safety Report 19490679 (Version 1)
Quarter: 2021Q3

REPORT INFORMATION
  Report Type: Spontaneous
  Country: US (occurrence: US)
  Receive Date: 20210705
  Receipt Date: 20210705
  Transmission Date: 20211014
  Serious: Yes (Hospitalization, Other)
  Sender: FDA-Public Use
  Company Number: US-HIKMA PHARMACEUTICALS USA INC.-US-H14001-21-03023

PATIENT
  Age: 58 Year
  Sex: Female
  Weight: 72.1 kg

DRUGS (9)
  1. PREDNISONE. [Suspect]
     Active Substance: PREDNISONE
     Route: 048
     Dates: start: 20210501
  2. PREDNISONE. [Suspect]
     Active Substance: PREDNISONE
     Route: 048
     Dates: start: 20210520
  3. IMATINIB. [Suspect]
     Active Substance: IMATINIB MESYLATE
     Indication: PRODUCT USED FOR UNKNOWN INDICATION
     Dosage: UNKNOWN
     Route: 065
     Dates: end: 20210503
  4. POSACONAZOLE [Suspect]
     Active Substance: POSACONAZOLE
     Indication: PRODUCT USED FOR UNKNOWN INDICATION
     Dosage: UNKNOWN
     Route: 065
     Dates: start: 20210413, end: 20210510
  5. DAPSONE. [Concomitant]
     Active Substance: DAPSONE
     Indication: PRODUCT USED FOR UNKNOWN INDICATION
     Dosage: UNKNOWN
     Route: 065
  6. PREDNISONE. [Suspect]
     Active Substance: PREDNISONE
     Route: 048
     Dates: start: 20210526
  7. PREDNISONE. [Suspect]
     Active Substance: PREDNISONE
     Indication: CHRONIC GRAFT VERSUS HOST DISEASE
     Route: 048
     Dates: start: 20210417
  8. INCB039110 [Suspect]
     Active Substance: ITACITINIB
     Indication: CHRONIC GRAFT VERSUS HOST DISEASE
     Route: 048
     Dates: start: 20210419
  9. PENICILLIN V POTASSIUM. [Concomitant]
     Active Substance: PENICILLIN V POTASSIUM
     Indication: PRODUCT USED FOR UNKNOWN INDICATION
     Dosage: UNKNOWN
     Route: 065

REACTIONS (24)
  - Alanine aminotransferase increased [Recovering/Resolving]
  - Oesophagitis [Recovering/Resolving]
  - Drug-induced liver injury [Unknown]
  - Night sweats [Recovering/Resolving]
  - Blood chloride increased [Unknown]
  - Liver function test increased [Recovering/Resolving]
  - Constipation [Unknown]
  - Blood bilirubin increased [Recovering/Resolving]
  - Platelet count decreased [Recovering/Resolving]
  - Blood glucose increased [Unknown]
  - Blood sodium decreased [Unknown]
  - Eosinophil percentage decreased [Unknown]
  - Fatigue [Unknown]
  - Red blood cell count decreased [Unknown]
  - Muscle spasms [Unknown]
  - Haemoglobin decreased [Unknown]
  - Drug interaction [Unknown]
  - Aspartate aminotransferase increased [Recovering/Resolving]
  - Oedema peripheral [Unknown]
  - Haematochezia [Unknown]
  - Musculoskeletal chest pain [Unknown]
  - Dyspnoea [Unknown]
  - Blood alkaline phosphatase increased [Unknown]
  - Blood lactate dehydrogenase increased [Unknown]

NARRATIVE: CASE EVENT DATE: 20210419
